FAERS Safety Report 10912448 (Version 1)
Quarter: 2015Q1

REPORT INFORMATION
  Report Type: Spontaneous
  Country: US (occurrence: None)
  Receive Date: 20150310
  Receipt Date: 20150310
  Transmission Date: 20150721
  Serious: No
  Sender: FDA-Public Use
  Company Number: None

PATIENT
  Age: 56 Year
  Sex: Male
  Weight: 126.55 kg

DRUGS (4)
  1. LISINIPRIL 5MG [Concomitant]
     Active Substance: LISINOPRIL
  2. HDROCLOROTHIAZIDE [Concomitant]
  3. AMLODIPINE BESYLATE. [Suspect]
     Active Substance: AMLODIPINE BESYLATE
     Indication: HYPERTENSION
     Route: 048
     Dates: start: 20150201, end: 20150307
  4. NORVASC [Concomitant]
     Active Substance: AMLODIPINE BESYLATE

REACTIONS (4)
  - Product counterfeit [None]
  - Peripheral swelling [None]
  - Drug ineffective [None]
  - Pain in extremity [None]

NARRATIVE: CASE EVENT DATE: 20150307
